FAERS Safety Report 4447849-7 (Version None)
Quarter: 2004Q3

REPORT INFORMATION
  Report Type: 
  Country: None (occurrence: None)
  Receive Date: 20040729
  Receipt Date: 20040210
  Transmission Date: 20050211
  Serious: Yes (Hospitalization)
  Sender: FDA-Public Use
  Company Number: SAGL/04/01/FRA

PATIENT
  Age: 75 Year
  Sex: Male
  Weight: 65 kg

DRUGS (1)
  1. SANDOGLOBULIN [Suspect]
     Indication: CHRONIC LYMPHOCYTIC LEUKAEMIA
     Dosage: 12 G, I.V.
     Route: 042
     Dates: start: 20001229, end: 20001229

REACTIONS (3)
  - CHILLS [None]
  - HYPERSENSITIVITY [None]
  - INFUSION RELATED REACTION [None]
